FAERS Safety Report 6659732-7 (Version None)
Quarter: 2010Q1

REPORT INFORMATION
  Report Type: 
  Country: None (occurrence: None)
  Receive Date: 20100325
  Receipt Date: 20100315
  Transmission Date: 20100710
  Serious: Yes (Other)
  Sender: FDA-Public Use
  Company Number: 1000012632

PATIENT
  Age: 38 Year
  Sex: Female

DRUGS (4)
  1. CITALOPRAM (CITALOPRAM HYDROBROMIDE) (20 MILLIGRAM, TABLETS) [Suspect]
     Dosage: 20 MG (20 MG, 1 IN 1 D), ORAL
     Route: 048
  2. DOMINAL (80 MILLIGRAM, TABLETS) [Suspect]
     Dosage: 800 MG (800 MG, 1 IN 1 D), ORAL
     Route: 048
     Dates: start: 20100306, end: 20100312
  3. DOXEPIN HCL [Suspect]
     Dosage: 500 MG (500 MG, 1 IN 1 D), ORAL
     Route: 048
     Dates: start: 20100306, end: 20100312
  4. NEUROCIL (40 MILLIGRAM, DROPS (FOR ORAL USE)) [Suspect]
     Dosage: 500 MG (500 MG, 1 IN 1 D), ORAL
     Route: 048
     Dates: start: 20100306, end: 20100312

REACTIONS (3)
  - DIZZINESS [None]
  - DRUG ABUSE [None]
  - MULTIPLE DRUG OVERDOSE INTENTIONAL [None]
